FAERS Safety Report 5008283-4 (Version None)
Quarter: 2006Q1

REPORT INFORMATION
  Report Type: 
  Country: None (occurrence: None)
  Receive Date: 20060331
  Receipt Date: 20050830
  Transmission Date: 20060701
  Serious: Yes (Life-Threatening)
  Sender: FDA-Public Use
  Company Number: WAES 0508USA04860

PATIENT
  Age: 80 Year
  Sex: Male
  Weight: 66.6788 kg

DRUGS (9)
  1. CANCIDAS [Suspect]
     Indication: CANDIDIASIS
     Dosage: 70 MG/1X/IV; SEE IMAGE
     Route: 042
     Dates: start: 20050825, end: 20050825
  2. CANCIDAS [Suspect]
     Indication: GRAFT INFECTION
     Dosage: 70 MG/1X/IV; SEE IMAGE
     Route: 042
     Dates: start: 20050825, end: 20050825
  3. CANCIDAS [Suspect]
     Indication: CANDIDIASIS
     Dosage: 70 MG/1X/IV; SEE IMAGE
     Route: 042
     Dates: start: 20050826
  4. CANCIDAS [Suspect]
     Indication: GRAFT INFECTION
     Dosage: 70 MG/1X/IV; SEE IMAGE
     Route: 042
     Dates: start: 20050826
  5. LIPITOR [Concomitant]
  6. ASPIRIN [Concomitant]
  7. ATENOLOL [Concomitant]
  8. HEPARIN [Concomitant]
  9. LEVOMETHADYL ACETATE [Concomitant]

REACTIONS (1)
  - HYPOKALAEMIA [None]
